FAERS Safety Report 4371994-8 (Version None)
Quarter: 2004Q2

REPORT INFORMATION
  Report Type: 
  Country: None (occurrence: None)
  Receive Date: 20040602
  Receipt Date: 20031204
  Transmission Date: 20050107
  Serious: Yes (Other)
  Sender: FDA-Public Use
  Company Number: US-JNJFOC-20031204492

PATIENT
  Age: 53 Year

DRUGS (1)
  1. PROPULSID [Suspect]
     Dates: start: 19970101, end: 19990101

REACTIONS (3)
  - CHEST PAIN [None]
  - MENTAL IMPAIRMENT [None]
  - SUICIDE ATTEMPT [None]
